FAERS Safety Report 24022431 (Version 1)
Quarter: 2024Q2

REPORT INFORMATION
  Report Type: Spontaneous
  Country: US (occurrence: US)
  Receive Date: 20240627
  Receipt Date: 20240627
  Transmission Date: 20240716
  Serious: No
  Sender: FDA-Public Use
  Company Number: US-NEUROCRINE BIOSCIENCES INC.-2024NBI06008

PATIENT
  Age: 18 Year
  Sex: Female

DRUGS (1)
  1. INGREZZA [Suspect]
     Active Substance: VALBENAZINE
     Indication: Tardive dyskinesia
     Dosage: 40 MILLIGRAM
     Route: 065

REACTIONS (5)
  - Muscle twitching [Unknown]
  - Disorientation [Unknown]
  - Tardive dyskinesia [Recovered/Resolved]
  - Dehydration [Unknown]
  - Tremor [Recovered/Resolved]
